FAERS Safety Report 18948518 (Version 1)
Quarter: 2021Q1

REPORT INFORMATION
  Report Type: Spontaneous
  Country: US (occurrence: US)
  Receive Date: 20210226
  Receipt Date: 20210226
  Transmission Date: 20210420
  Serious: No
  Sender: FDA-Public Use
  Company Number: US-ROCHE-2555769

PATIENT
  Sex: Female

DRUGS (3)
  1. XOLAIR [Suspect]
     Active Substance: OMALIZUMAB
     Dosage: 75 MG/0.5 ML
     Route: 058
     Dates: start: 20200203
  2. XOLAIR [Suspect]
     Active Substance: OMALIZUMAB
     Indication: ASTHMA
     Dosage: 150 MG/ML
     Route: 058
     Dates: start: 20200203
  3. ZYRTEC (UNITED STATES) [Concomitant]

REACTIONS (1)
  - Somnolence [Unknown]
